FAERS Safety Report 5675906-6 (Version None)
Quarter: 2008Q1

REPORT INFORMATION
  Report Type: 
  Country: None (occurrence: None)
  Receive Date: 20080321
  Receipt Date: 20080319
  Transmission Date: 20080703
  Serious: Yes (Hospitalization)
  Sender: FDA-Public Use
  Company Number: B0507010A

PATIENT

DRUGS (12)
  1. MELPHALAN [Suspect]
     Indication: BONE MARROW TRANSPLANT
     Dosage: 400MG PER DAY
     Route: 042
     Dates: start: 20080108, end: 20080108
  2. ZOPHREN [Concomitant]
     Dosage: 8MG SINGLE DOSE
     Route: 065
     Dates: start: 20080108, end: 20080108
  3. DEXAMETHASONE TAB [Concomitant]
     Dosage: 10MG SINGLE DOSE
     Route: 042
     Dates: start: 20080108, end: 20080108
  4. BACTRIM [Concomitant]
  5. FUNGIZONE [Concomitant]
     Route: 048
  6. VALACYCLOVIR [Concomitant]
  7. MOPRAL [Concomitant]
     Route: 048
  8. HEPARIN [Concomitant]
  9. FOLINATE DE CALCIUM [Concomitant]
  10. MAG 2 [Concomitant]
  11. DEXTROSE 5% [Concomitant]
  12. POTASSIUM CHLORIDE [Concomitant]

REACTIONS (4)
  - BLOOD PRESSURE DECREASED [None]
  - CARDIAC OUTPUT DECREASED [None]
  - CARDIOGENIC SHOCK [None]
  - PHARMACEUTICAL PRODUCT COMPLAINT [None]
